FAERS Safety Report 13402285 (Version 2)
Quarter: 2017Q2

REPORT INFORMATION
  Report Type: Report from Study
  Country: US (occurrence: BR)
  Receive Date: 20170404
  Receipt Date: 20170412
  Transmission Date: 20170830
  Serious: Yes (Other)
  Sender: FDA-Public Use
  Company Number: US-SUNOVION-2017SUN001393

PATIENT
  Sex: Female
  Weight: 64 kg

DRUGS (2)
  1. INDACATEROL AND GLYCOPYRROLATE [Suspect]
     Active Substance: GLYCOPYRROLATE\INDACATEROL MALEATE
     Indication: OBSTRUCTIVE AIRWAYS DISORDER
     Dosage: 1 DF(110/50 UG), QD
     Route: 055
     Dates: start: 20161115
  2. INDACATEROL AND GLYCOPYRROLATE [Suspect]
     Active Substance: GLYCOPYRROLATE\INDACATEROL MALEATE
     Indication: EMPHYSEMA

REACTIONS (17)
  - Gait disturbance [Unknown]
  - Localised infection [Unknown]
  - Pain [Unknown]
  - Fatigue [Unknown]
  - Foot deformity [Unknown]
  - Arthritis [Unknown]
  - Obstruction [Unknown]
  - Wrong technique in product usage process [Unknown]
  - Morton^s neuralgia [Unknown]
  - Feeling abnormal [Unknown]
  - Pain in extremity [Unknown]
  - Inflammation [Unknown]
  - Arthropathy [Unknown]
  - Device malfunction [Unknown]
  - Spinal disorder [Unknown]
  - Incorrect dose administered [Unknown]
  - Shock [Unknown]
